FAERS Safety Report 19973182 (Version 2)
Quarter: 2021Q4

REPORT INFORMATION
  Report Type: Spontaneous
  Country: US (occurrence: None)
  Receive Date: 20211020
  Receipt Date: 20211229
  Transmission Date: 20220303
  Serious: Yes (Other)
  Sender: FDA-Public Use
  Company Number: US-MLMSERVICE-20211005-3150485-1

PATIENT
  Age: 58 Year
  Sex: Female

DRUGS (7)
  1. PREDNISONE [Suspect]
     Active Substance: PREDNISONE
     Indication: Polychondritis
     Route: 065
  2. PREDNISONE [Suspect]
     Active Substance: PREDNISONE
     Dosage: PREDNISONE TAPER
     Route: 065
  3. METHYLPREDNISOLONE [Suspect]
     Active Substance: METHYLPREDNISOLONE
     Indication: Idiopathic orbital inflammation
     Route: 042
  4. LISINOPRIL [Concomitant]
     Active Substance: LISINOPRIL
     Indication: Hypertension
     Route: 065
  5. SULFASALAZINE [Concomitant]
     Active Substance: SULFASALAZINE
     Indication: Arthritis reactive
     Dosage: 2 G DIVIDED TWICE DAILY
     Route: 065
  6. CEFAZOLIN [Concomitant]
     Active Substance: CEFAZOLIN
     Indication: Evidence based treatment
     Route: 065
  7. EMTRICITABINE/TENOFOVIR ALAFENAMIDE FUMARATE/DARUNAVIR ETHANOLATE/COBI [Concomitant]
     Indication: HIV infection
     Dosage: UNKNOWN
     Route: 065

REACTIONS (2)
  - Blood glucose abnormal [Unknown]
  - Compression fracture [Unknown]
